FAERS Safety Report 9041244 (Version 1)
Quarter: 2013Q1

REPORT INFORMATION
  Report Type: Spontaneous
  Country: US (occurrence: None)
  Receive Date: 20130114
  Receipt Date: 20130114
  Transmission Date: 20140127
  Serious: Yes (Hospitalization)
  Sender: FDA-Public Use
  Company Number: USA/USA/13/0027395

PATIENT
  Age: 62 Year
  Sex: Male

DRUGS (1)
  1. GEMCITABINE FOR INJECTION (1 GRAM LYOPHILIZED POWDER IN A STERILE SINGLE-USE VIAL) (GEMCITABINE) [Suspect]
     Indication: CHEMOTHERAPY

REACTIONS (6)
  - Pericardial effusion [None]
  - Pulmonary toxicity [None]
  - Oedema peripheral [None]
  - Hypertensive emergency [None]
  - Blood glucose abnormal [None]
  - Eosinophilia [None]
